FAERS Safety Report 9884373 (Version 2)
Quarter: 2014Q1

REPORT INFORMATION
  Report Type: Spontaneous
  Country: US (occurrence: US)
  Receive Date: 20140210
  Receipt Date: 20140210
  Transmission Date: 20141002
  Serious: No
  Sender: FDA-Public Use
  Company Number: US-ALLERGAN-1319196US

PATIENT
  Age: 60 Year
  Sex: Female

DRUGS (6)
  1. BOTOX [Suspect]
     Indication: MIGRAINE
     Dosage: 155 UNITS, SINGLE
     Route: 030
     Dates: start: 20130927, end: 20130927
  2. ZESTORETIC [Concomitant]
     Indication: HYPERTENSION
     Dosage: UNK UNK, QD
     Route: 048
  3. ASA [Concomitant]
     Indication: CAROTID ARTERY DISSECTION
     Dosage: 325 MG, BID
     Route: 048
  4. ZANAFLEX [Concomitant]
     Indication: MUSCLE RELAXANT THERAPY
     Dosage: UNK UNK, QD
     Route: 048
  5. NEXIUM                             /01479302/ [Concomitant]
     Indication: GASTROOESOPHAGEAL REFLUX DISEASE
     Dosage: UNK
     Route: 048
  6. MEDICATIONS NOS [Concomitant]
     Indication: MIGRAINE
     Dosage: UNK, PRN

REACTIONS (1)
  - Skin disorder [Not Recovered/Not Resolved]
